FAERS Safety Report 7729695-1 (Version None)
Quarter: 2011Q3

REPORT INFORMATION
  Report Type: 
  Country: None (occurrence: None)
  Receive Date: 20110906
  Receipt Date: 20110829
  Transmission Date: 20111222
  Serious: Yes (Other)
  Sender: FDA-Public Use
  Company Number: AT-BAXTER-2011BH028059

PATIENT
  Age: 27 Year
  Weight: 64 kg

DRUGS (5)
  1. FENTANYL CITRATE [Suspect]
     Indication: GENERAL ANAESTHESIA
     Route: 065
  2. SUCCINYLCHOLINE CHLORIDE [Suspect]
     Indication: GENERAL ANAESTHESIA
     Route: 065
  3. THIOPENTAL SODIUM (TEVA) [Suspect]
     Indication: GENERAL ANAESTHESIA
     Route: 065
  4. RINGERS INJECTION IN PLASTIC CONTAINER [Suspect]
     Indication: CAESAREAN SECTION
     Route: 065
  5. RINGERS INJECTION IN PLASTIC CONTAINER [Suspect]
     Indication: BRAIN TUMOUR OPERATION
     Route: 065

REACTIONS (3)
  - MATERNAL EXPOSURE DURING PREGNANCY [None]
  - PREMATURE DELIVERY [None]
  - GRAND MAL CONVULSION [None]
